FAERS Safety Report 23323755 (Version 1)
Quarter: 2023Q4

REPORT INFORMATION
  Report Type: Spontaneous
  Country: HR (occurrence: HR)
  Receive Date: 20231220
  Receipt Date: 20231220
  Transmission Date: 20240109
  Serious: Yes (Hospitalization, Other)
  Sender: FDA-Public Use
  Company Number: HR-ABBVIE-5546655

PATIENT
  Age: 73 Year
  Sex: Female

DRUGS (3)
  1. VENETOCLAX [Suspect]
     Active Substance: VENETOCLAX
     Indication: Chronic lymphocytic leukaemia
     Dosage: START WITH RAMP UP TO 400 MG DAILY DOSE
     Route: 048
     Dates: start: 20221123, end: 20230609
  2. VENETOCLAX [Suspect]
     Active Substance: VENETOCLAX
     Indication: Chronic lymphocytic leukaemia
     Dosage: 400 MILLIGRAM
     Route: 048
     Dates: start: 20230703, end: 20230804
  3. OBINUTUZUMAB [Concomitant]
     Active Substance: OBINUTUZUMAB
     Indication: Chronic lymphocytic leukaemia
     Dates: start: 20221123

REACTIONS (17)
  - Asthma [Unknown]
  - Pyrexia [Recovered/Resolved]
  - Immunosuppression [Unknown]
  - Respiratory tract infection [Recovered/Resolved]
  - Decreased appetite [Unknown]
  - Viral infection [Recovered/Resolved]
  - Mycobacterium test positive [Not Recovered/Not Resolved]
  - Oropharyngeal pain [Recovered/Resolved]
  - Weight decreased [Unknown]
  - Immunodeficiency [Recovered/Resolved]
  - Pneumonia [Recovered/Resolved]
  - Pulmonary embolism [Recovered/Resolved]
  - Hyperhidrosis [Recovered/Resolved]
  - Respiratory failure [Recovered/Resolved]
  - Respiratory failure [Recovered/Resolved]
  - Embolic pneumonia [Unknown]
  - Mobility decreased [Unknown]

NARRATIVE: CASE EVENT DATE: 20230201
